FAERS Safety Report 5134437-2 (Version None)
Quarter: 2007Q1

REPORT INFORMATION
  Report Type: 
  Country: None (occurrence: None)
  Receive Date: 20061019
  Receipt Date: 20061009
  Transmission Date: 20070707
  Serious: Yes (Death, Hospitalization)
  Sender: FDA-Public Use
  Company Number: 163-C5013-06050853

PATIENT
  Age: 52 Year
  Sex: Female

DRUGS (2)
  1. REVLIMID [Suspect]
     Indication: MULTIPLE MYELOMA
     Dosage: 25 MG, DAILY X21D Q28D, ORAL
     Route: 048
     Dates: start: 20060412, end: 20060517
  2. DEXAMETHASONE TAB [Suspect]
     Indication: MULTIPLE MYELOMA
     Dosage: 40 MG, DAILY X4D Q 4D, ORAL
     Route: 048
     Dates: start: 20060412, end: 20060517

REACTIONS (8)
  - ARTHROPOD BITE [None]
  - CANDIDIASIS [None]
  - DYSGEUSIA [None]
  - NEUTROPENIA [None]
  - OEDEMA PERIPHERAL [None]
  - SEPSIS [None]
  - STOMATITIS [None]
  - WEIGHT DECREASED [None]
